FAERS Safety Report 7640082-7 (Version None)
Quarter: 2011Q3

REPORT INFORMATION
  Report Type: 
  Country: None (occurrence: None)
  Receive Date: 20110727
  Receipt Date: 20110714
  Transmission Date: 20111222
  Serious: Yes (Hospitalization, Other)
  Sender: FDA-Public Use
  Company Number: US-ELI_LILLY_AND_COMPANY-US201106003243

PATIENT
  Sex: Female

DRUGS (21)
  1. FORTEO [Suspect]
     Indication: OSTEOPOROSIS
     Dosage: 20 UG, UNKNOWN
     Route: 065
     Dates: start: 20110523
  2. FORTEO [Suspect]
     Dosage: 20 UG, UNKNOWN
     Route: 065
  3. FORTEO [Suspect]
     Dosage: 20 UG, UNKNOWN
     Route: 065
  4. FORTEO [Suspect]
     Dosage: 20 UG, UNKNOWN
     Route: 065
  5. VESICARE [Concomitant]
     Dosage: 10 MG, UNK
  6. ALLOPURINOL [Concomitant]
     Dosage: 150 MG, QD
  7. ASPIRIN [Concomitant]
     Dosage: 81 MG, QD
  8. METOPROLOL TARTRATE [Concomitant]
     Dosage: 50 MG, UNK
  9. VIT B12 [Concomitant]
     Dosage: 2000 MG, QD
  10. DEXLANSOPRAZOLE [Concomitant]
     Dosage: 60 MG, UNK
  11. STOOL SOFTENER [Concomitant]
     Dosage: 100 MG, UNK
  12. PLAVIX [Concomitant]
     Dosage: 75 MG, UNK
  13. ARICEPT [Concomitant]
     Dosage: 10 MG, UNK
  14. LEVOTHYROXINE SODIUM [Concomitant]
     Dosage: 100 MG, QD
  15. ISOSORBIDE DINITRATE [Concomitant]
     Dosage: 60 MG, BID
  16. FERROUS SULFATE TAB [Concomitant]
     Dosage: 125 MG, QD
  17. ALPRAZOLAM [Concomitant]
     Dosage: 25 MG, UNK
  18. AMLODIPINE [Concomitant]
     Dosage: 10 MG, UNK
  19. VITAMIN D [Concomitant]
     Dosage: 1000 IU, QD
  20. HYOSCYAMINE [Concomitant]
     Dosage: 2 DF, QD
  21. SIMVASTATIN [Concomitant]
     Dosage: 40 MG, UNK

REACTIONS (7)
  - CHEST PAIN [None]
  - FLATULENCE [None]
  - DYSPEPSIA [None]
  - MALAISE [None]
  - MYOCARDIAL INFARCTION [None]
  - ERUCTATION [None]
  - NAUSEA [None]
